FAERS Safety Report 12295693 (Version 1)
Quarter: 2016Q2

REPORT INFORMATION
  Report Type: Report from Study
  Country: JP (occurrence: JP)
  Receive Date: 20160422
  Receipt Date: 20160422
  Transmission Date: 20160815
  Serious: Yes (Hospitalization)
  Sender: FDA-Public Use
  Company Number: PHHO2014JP019254

PATIENT
  Age: 64 Year
  Sex: Male
  Weight: 59.8 kg

DRUGS (10)
  1. ARZERRA [Suspect]
     Active Substance: OFATUMUMAB
     Dosage: 1000 MG, CYCLIC
     Route: 042
     Dates: start: 20140610, end: 20140610
  2. LANSOPRAZOLE. [Concomitant]
     Active Substance: LANSOPRAZOLE
     Indication: PROPHYLAXIS AGAINST GASTROINTESTINAL ULCER
     Dosage: 30 MG, QD
     Route: 048
     Dates: start: 201112, end: 20140929
  3. ARZERRA [Suspect]
     Active Substance: OFATUMUMAB
     Indication: B-CELL LYMPHOMA
     Dosage: 1000 MG, CYCLIC
     Route: 042
     Dates: start: 20131016, end: 20131016
  4. ARZERRA [Suspect]
     Active Substance: OFATUMUMAB
     Dosage: 1000 MG, CYCLIC
     Route: 042
     Dates: start: 20140218, end: 20140218
  5. ALLOPURINOL. [Concomitant]
     Active Substance: ALLOPURINOL
     Indication: HYPERURICAEMIA
     Dosage: 50 MG, QD
     Route: 048
     Dates: start: 2011, end: 20140929
  6. ARZERRA [Suspect]
     Active Substance: OFATUMUMAB
     Dosage: 1000 MG, CYCLIC
     Route: 042
     Dates: start: 20131022, end: 20131022
  7. ARZERRA [Suspect]
     Active Substance: OFATUMUMAB
     Dosage: 1000 MG, CYCLIC
     Route: 042
     Dates: start: 20131105, end: 20131105
  8. ARZERRA [Suspect]
     Active Substance: OFATUMUMAB
     Dosage: 1000 MG, CYCLIC
     Route: 042
     Dates: start: 20131226, end: 20131226
  9. ARZERRA [Suspect]
     Active Substance: OFATUMUMAB
     Dosage: 1000 MG, CYCLIC
     Route: 042
     Dates: start: 20131029, end: 20131029
  10. ARZERRA [Suspect]
     Active Substance: OFATUMUMAB
     Dosage: 1000 MG, CYCLIC
     Route: 042
     Dates: start: 20140415, end: 20140415

REACTIONS (1)
  - Diarrhoea [Recovered/Resolved]

NARRATIVE: CASE EVENT DATE: 20140909
